FAERS Safety Report 9685536 (Version 1)
Quarter: 2013Q4

REPORT INFORMATION
  Report Type: Spontaneous
  Country: FR (occurrence: FR)
  Receive Date: 20131113
  Receipt Date: 20131113
  Transmission Date: 20140711
  Serious: Yes (Hospitalization)
  Sender: FDA-Public Use
  Company Number: FR-BRISTOL-MYERS SQUIBB COMPANY-19803642

PATIENT
  Age: 74 Year
  Sex: Male

DRUGS (8)
  1. GLUCOPHAGE TABS 850 MG [Suspect]
     Dosage: 850MG,3 IN 1D
     Route: 048
  2. NEXAVAR [Suspect]
     Indication: HEPATOCELLULAR CARCINOMA
     Dosage: 400MG,2 IN 1D
     Route: 048
     Dates: start: 20130612
  3. GLICLAZIDE [Suspect]
     Route: 048
  4. TAHOR [Suspect]
     Route: 048
  5. PLAVIX [Suspect]
     Route: 048
  6. INEXIUM [Suspect]
     Route: 048
  7. LOVENOX [Suspect]
     Dosage: SOLUTION FOR INJECTION
     Route: 058
  8. FORTIMEL [Concomitant]

REACTIONS (3)
  - Aphasia [Recovered/Resolved]
  - Partial seizures [Recovered/Resolved]
  - Altered state of consciousness [Recovered/Resolved]
